FAERS Safety Report 6411703-1 (Version None)
Quarter: 2009Q4

REPORT INFORMATION
  Report Type: 
  Country: None (occurrence: None)
  Receive Date: 20091023
  Receipt Date: 20091014
  Transmission Date: 20100525
  Serious: Yes (Hospitalization)
  Sender: FDA-Public Use
  Company Number: FR-ASTRAZENECA-2009SE20569

PATIENT
  Age: 86 Year
  Sex: Female

DRUGS (10)
  1. NEXIUM [Suspect]
     Indication: OESOPHAGITIS
     Route: 048
     Dates: end: 20091004
  2. TENSTATEN [Suspect]
     Route: 048
     Dates: end: 20091004
  3. IXPRIM [Concomitant]
     Route: 048
  4. IRBESARTAN [Concomitant]
     Route: 048
  5. PLAVIX [Concomitant]
     Route: 048
  6. PRAXILENE [Concomitant]
     Route: 048
  7. TAHOR [Concomitant]
     Route: 048
  8. DIHYDROERGOTAMINE MESYLATE [Concomitant]
     Route: 048
  9. EFFERALGAN [Concomitant]
     Route: 048
  10. CACIT D3 [Concomitant]
     Route: 048

REACTIONS (2)
  - FALL [None]
  - HYPONATRAEMIA [None]
